FAERS Safety Report 12608740 (Version 1)
Quarter: 2016Q3

REPORT INFORMATION
  Report Type: Spontaneous
  Country: CL (occurrence: CL)
  Receive Date: 20160729
  Receipt Date: 20160729
  Transmission Date: 20161109
  Serious: Yes (Other)
  Sender: FDA-Public Use
  Company Number: CL-BIOMARINAP-CL-2016-110593

PATIENT
  Age: 6 Year
  Sex: Male
  Weight: 22 kg

DRUGS (1)
  1. ALDURAZYME [Suspect]
     Active Substance: LARONIDASE
     Indication: MUCOPOLYSACCHARIDOSIS I
     Dosage: UNK, QW
     Route: 042
     Dates: start: 20100501

REACTIONS (3)
  - Pyrexia [Recovering/Resolving]
  - Mitral valve disease [Not Recovered/Not Resolved]
  - Respiratory symptom [Recovering/Resolving]

NARRATIVE: CASE EVENT DATE: 20160701
